FAERS Safety Report 8935088 (Version 1)
Quarter: 2012Q4

REPORT INFORMATION
  Report Type: 
  Country: BR (occurrence: BR)
  Receive Date: 20121129
  Receipt Date: 20121129
  Transmission Date: 20130627
  Serious: Yes (Other)
  Sender: FDA-Public Use
  Company Number: BR-VERTEX PHARMACEUTICAL INC.-2012-024582

PATIENT
  Age: 49 Year
  Sex: Male
  Weight: 87 kg

DRUGS (3)
  1. INCIVO [Suspect]
     Indication: HEPATITIS C
     Dosage: Dosage Form: Tablet
     Route: 048
     Dates: start: 20121026
  2. RIBAVIRIN [Concomitant]
     Indication: HEPATITIS C
     Dosage: Dosage Form: Unspecified
     Route: 065
  3. INTERFERON [Concomitant]
     Indication: HEPATITIS C
     Dosage: Dosage Form: Unspecified
     Route: 065
     Dates: start: 20121026

REACTIONS (6)
  - Depression [Not Recovered/Not Resolved]
  - Asthenia [Not Recovered/Not Resolved]
  - Weight decreased [Not Recovered/Not Resolved]
  - Decreased appetite [Not Recovered/Not Resolved]
  - Rash [Not Recovered/Not Resolved]
  - Nausea [Not Recovered/Not Resolved]
